FAERS Safety Report 15762051 (Version 1)
Quarter: 2018Q4

REPORT INFORMATION
  Report Type: Spontaneous
  Country: FR (occurrence: FR)
  Receive Date: 20181226
  Receipt Date: 20181226
  Transmission Date: 20190205
  Serious: Yes (Other)
  Sender: FDA-Public Use
  Company Number: FR-LUNDBECK-DKLU2058660

PATIENT
  Age: 35 Year
  Sex: Male

DRUGS (2)
  1. KLIPAL [Suspect]
     Active Substance: ACETAMINOPHEN\CODEINE PHOSPHATE
     Indication: TOXICITY TO VARIOUS AGENTS
     Dosage: OVERDOSE: 10 DF TOTAL
     Route: 048
     Dates: start: 20170812, end: 20170812
  2. URBANYL [Suspect]
     Active Substance: CLOBAZAM
     Indication: TOXICITY TO VARIOUS AGENTS
     Dosage: OVERDOSE: 30 DF TOTAL
     Route: 048
     Dates: start: 20170812, end: 20170812

REACTIONS (3)
  - Overdose [Unknown]
  - Bradycardia [Recovered/Resolved]
  - Somnolence [Recovered/Resolved]

NARRATIVE: CASE EVENT DATE: 20170812
